FAERS Safety Report 8956081 (Version 2)
Quarter: 2013Q1

REPORT INFORMATION
  Report Type: Spontaneous
  Country: US (occurrence: US)
  Receive Date: 20121210
  Receipt Date: 20130320
  Transmission Date: 20140127
  Serious: Yes (Hospitalization)
  Sender: FDA-Public Use
  Company Number: US-BAYER-2012-127907

PATIENT
  Age: 36 Year
  Sex: Female

DRUGS (3)
  1. YASMIN [Suspect]
     Indication: CONTRACEPTION
  2. AMBIEN [Concomitant]
  3. DYNACIN [Concomitant]
     Indication: ACNE

REACTIONS (2)
  - Pulmonary embolism [None]
  - Deep vein thrombosis [None]
